FAERS Safety Report 5869554-2 (Version None)
Quarter: 2008Q3

REPORT INFORMATION
  Report Type: 
  Country: None (occurrence: None)
  Receive Date: 20080902
  Receipt Date: 20080826
  Transmission Date: 20090109
  Serious: Yes (Hospitalization)
  Sender: FDA-Public Use
  Company Number: 2008SP002690

PATIENT
  Age: 64 Year
  Sex: Female
  Weight: 90.2658 kg

DRUGS (16)
  1. PEG-INTRON [Suspect]
     Indication: HEPATITIS C
     Dosage: 150 MCG;QW; SC
     Route: 058
     Dates: start: 20071014, end: 20080205
  2. ASPIRIN [Concomitant]
  3. CARDURA [Concomitant]
  4. FLUOXETINE [Concomitant]
  5. NAPROXEN [Concomitant]
  6. PREVACID [Concomitant]
  7. TRAMADOL HYDROCHLORIDE AND ACETAMINOPHEN [Concomitant]
  8. XANAX [Concomitant]
  9. AVALIDE [Concomitant]
  10. CYCLOBENZAPRINE HCL [Concomitant]
  11. LYRICA [Concomitant]
  12. ORPHENADRINE CITRATE [Concomitant]
  13. REGLAN [Concomitant]
  14. VERAPAMIL [Concomitant]
  15. LEVSIN SL [Concomitant]
  16. REBETOL [Suspect]
     Indication: HEPATITIS C
     Dosage: 600 MG;BID;PO
     Route: 048
     Dates: start: 20071014, end: 20080205

REACTIONS (16)
  - ANAEMIA [None]
  - ASTHENIA [None]
  - ASTHMA [None]
  - BLOOD DISORDER [None]
  - CHEST PAIN [None]
  - DIARRHOEA [None]
  - DIZZINESS [None]
  - DRY SKIN [None]
  - FAECES DISCOLOURED [None]
  - FLUID INTAKE REDUCED [None]
  - GAIT DISTURBANCE [None]
  - HEADACHE [None]
  - MYALGIA [None]
  - PRURITUS [None]
  - RASH [None]
  - THINKING ABNORMAL [None]
